FAERS Safety Report 25912316 (Version 1)
Quarter: 2025Q4

REPORT INFORMATION
  Report Type: Spontaneous
  Country: US (occurrence: US)
  Receive Date: 20251013
  Receipt Date: 20251013
  Transmission Date: 20260118
  Serious: Yes (Hospitalization, Other)
  Sender: NUVATION BIO
  Company Number: US-NUVATION BIO INC.-2025NUV000251

PATIENT
  Age: 75 Year

DRUGS (1)
  1. IBTROZI [Suspect]
     Active Substance: TALETRECTINIB ADIPATE
     Dosage: 200 MILLIGRAM, QD
     Dates: start: 20250818, end: 20250918

REACTIONS (4)
  - Endocarditis [Recovering/Resolving]
  - Escherichia infection [Recovering/Resolving]
  - Cerebrovascular accident [Recovering/Resolving]
  - Incorrect dose administered [Unknown]

NARRATIVE: CASE EVENT DATE: 20250918
